FAERS Safety Report 16115871 (Version 1)
Quarter: 2019Q1

REPORT INFORMATION
  Report Type: Spontaneous
  Country: US (occurrence: US)
  Receive Date: 20190326
  Receipt Date: 20190326
  Transmission Date: 20190418
  Serious: No
  Sender: FDA-Public Use
  Company Number: US-AUROBINDO-AUR-APU-2018-034918

PATIENT
  Sex: Female
  Weight: 59 kg

DRUGS (1)
  1. FLUOXETINE [Suspect]
     Active Substance: FLUOXETINE HYDROCHLORIDE
     Indication: DEPRESSION
     Dosage: ONE OR ONE AND HALF PER DAY
     Route: 065
     Dates: start: 20180618

REACTIONS (7)
  - Product formulation issue [Unknown]
  - Somnolence [Recovering/Resolving]
  - Drug ineffective [Unknown]
  - Product taste abnormal [Unknown]
  - Wrong technique in product usage process [Unknown]
  - Product substitution issue [Unknown]
  - Depression [Recovering/Resolving]
